FAERS Safety Report 4629885-0 (Version None)
Quarter: 2005Q2

REPORT INFORMATION
  Report Type: 
  Country: None (occurrence: None)
  Receive Date: 20050406
  Receipt Date: 20050321
  Transmission Date: 20051028
  Serious: Yes (Hospitalization)
  Sender: FDA-Public Use
  Company Number: US_0503114593

PATIENT
  Age: 70 Year
  Sex: Female

DRUGS (3)
  1. GEMZAR [Suspect]
     Indication: GALLBLADDER CANCER
     Dosage: 1000 MG/M2
  2. ONDANSETRON [Concomitant]
  3. DEXAMETHASONE [Concomitant]

REACTIONS (1)
  - APNOEA [None]
